FAERS Safety Report 10972306 (Version 4)
Quarter: 2016Q2

REPORT INFORMATION
  Report Type: Spontaneous
  Country: US (occurrence: US)
  Receive Date: 20150331
  Receipt Date: 20160608
  Transmission Date: 20160815
  Serious: No
  Sender: FDA-Public Use
  Company Number: US-JNJFOC-20140500547

PATIENT
  Age: 15 Year
  Sex: Male

DRUGS (2)
  1. RISPERDAL CONSTA [Suspect]
     Active Substance: RISPERIDONE
     Indication: PRODUCT USED FOR UNKNOWN INDICATION
     Route: 030
  2. RISPERDAL [Suspect]
     Active Substance: RISPERIDONE
     Indication: PRODUCT USED FOR UNKNOWN INDICATION
     Route: 065
     Dates: start: 19960218, end: 19971210

REACTIONS (5)
  - Gynaecomastia [Unknown]
  - Eating disorder [Unknown]
  - Dyskinesia [Unknown]
  - Psychosexual disorder [Unknown]
  - Somnolence [Unknown]

NARRATIVE: CASE EVENT DATE: 199602
